FAERS Safety Report 6492565-3 (Version None)
Quarter: 2009Q4

REPORT INFORMATION
  Report Type: 
  Country: None (occurrence: None)
  Receive Date: 20091208
  Receipt Date: 20091125
  Transmission Date: 20100525
  Serious: Yes (Other)
  Sender: FDA-Public Use
  Company Number: 444530

PATIENT
  Sex: Male

DRUGS (1)
  1. CIPROFLOXACIN [Suspect]

REACTIONS (3)
  - CONDITION AGGRAVATED [None]
  - DRUG INTERACTION [None]
  - SCHIZOPHRENIA [None]
